FAERS Safety Report 10202435 (Version 8)
Quarter: 2015Q1

REPORT INFORMATION
  Report Type: Report from Study
  Country: DE (occurrence: DE)
  Receive Date: 20140528
  Receipt Date: 20150128
  Transmission Date: 20150720
  Serious: Yes (Hospitalization)
  Sender: FDA-Public Use
  Company Number: DE-PFIZER INC-2014141806

PATIENT
  Age: 71 Year
  Sex: Male
  Weight: 67 kg

DRUGS (11)
  1. TEMSIROLIMUS [Suspect]
     Active Substance: TEMSIROLIMUS
     Dosage: 50 MG, CYCLIC ON DAYS 1 AND 8
     Dates: start: 20140430
  2. RITUXIMAB [Suspect]
     Active Substance: RITUXIMAB
     Dosage: 693.75 MG, CYCLIC
     Dates: start: 20140501
  3. CISPLATIN. [Suspect]
     Active Substance: CISPLATIN
     Dosage: 185 MG, CYCLIC
     Dates: start: 20140502
  4. CYTARABINE. [Suspect]
     Active Substance: CYTARABINE
     Dosage: 7400 MG, CYCLIC
     Dates: start: 20140503
  5. AUGMENTIN [Concomitant]
     Active Substance: AMOXICILLIN\CLAVULANATE POTASSIUM
     Dosage: 875/125 MG, DAILY
     Dates: start: 20140502, end: 20140512
  6. ALLOPURINOL. [Concomitant]
     Active Substance: ALLOPURINOL
     Dosage: 100 MG, DAILY
     Dates: start: 20140504
  7. DEXAMETHASONE. [Suspect]
     Active Substance: DEXAMETHASONE
     Dosage: 40 MG, CYCLIC
     Dates: start: 20140502
  8. PANTOPRAZOLE [Concomitant]
     Active Substance: PANTOPRAZOLE SODIUM
     Dosage: 80 MG, DAILY
     Dates: start: 20140424
  9. FUROSEMID [Concomitant]
     Active Substance: FUROSEMIDE
     Dosage: 40 MG, DAILY
     Dates: start: 20140424
  10. SPIRONOLACTONE. [Concomitant]
     Active Substance: SPIRONOLACTONE
     Dosage: 100 MG, DAILY
     Dates: start: 20140428
  11. ENOXAPARIN [Concomitant]
     Active Substance: ENOXAPARIN
     Dosage: 40 MG, UNK
     Dates: start: 20140424

REACTIONS (1)
  - Oesophageal candidiasis [Recovered/Resolved]

NARRATIVE: CASE EVENT DATE: 20140505
